FAERS Safety Report 12352176 (Version 3)
Quarter: 2016Q3

REPORT INFORMATION
  Report Type: Spontaneous
  Country: US (occurrence: US)
  Receive Date: 20160510
  Receipt Date: 20160711
  Transmission Date: 20161109
  Serious: Yes (Other)
  Sender: FDA-Public Use
  Company Number: US-BAYER-2016-086758

PATIENT
  Age: 28 Year
  Sex: Female
  Weight: 271 kg

DRUGS (4)
  1. PHENERGAN [DIBROMPROPAMIDINE ISETIONATE,PROMETHAZINE HYDROCHLORIDE [Concomitant]
     Dosage: 25 MG, PRN
     Route: 048
     Dates: start: 20100407
  2. PROVERA [Concomitant]
     Active Substance: MEDROXYPROGESTERONE ACETATE
     Dosage: 10 MG, QD
     Route: 048
     Dates: start: 20110518
  3. RANITIDINE HYDROCHLORIDE. [Concomitant]
     Active Substance: RANITIDINE HYDROCHLORIDE
     Dosage: 150 MG, TID
     Route: 048
     Dates: start: 20100407
  4. MIRENA [Suspect]
     Active Substance: LEVONORGESTREL
     Indication: CONTRACEPTION
     Dosage: 20 MCG/24HR, CONT
     Route: 015
     Dates: start: 20110601

REACTIONS (3)
  - Device breakage [Not Recovered/Not Resolved]
  - Device difficult to use [None]
  - Complication of device removal [Not Recovered/Not Resolved]

NARRATIVE: CASE EVENT DATE: 20151111
